FAERS Safety Report 7030638-7 (Version None)
Quarter: 2010Q4

REPORT INFORMATION
  Report Type: 
  Country: None (occurrence: None)
  Receive Date: 20101006
  Receipt Date: 20100930
  Transmission Date: 20110411
  Serious: Yes (Hospitalization, Other)
  Sender: FDA-Public Use
  Company Number: BR-ROCHE-730459

PATIENT
  Age: 30 Year
  Sex: Female

DRUGS (1)
  1. RIVOTRIL [Suspect]
     Indication: DEPRESSION
     Dosage: DOS: 2.5 MG/ML AT NIGHT
     Route: 048
     Dates: start: 20100921, end: 20100922

REACTIONS (4)
  - CEREBRAL ISCHAEMIA [None]
  - HYPOKINESIA [None]
  - OVERDOSE [None]
  - SOMNOLENCE [None]
